FAERS Safety Report 17604316 (Version 2)
Quarter: 2020Q2

REPORT INFORMATION
  Report Type: Spontaneous
  Country: ES (occurrence: ES)
  Receive Date: 20200331
  Receipt Date: 20200428
  Transmission Date: 20200713
  Serious: Yes (Death, Other)
  Sender: FDA-Public Use
  Company Number: ES-SA-2020SA078734

PATIENT
  Age: 7 Month
  Sex: Male

DRUGS (1)
  1. ALDURAZYME [Suspect]
     Active Substance: LARONIDASE
     Dosage: UNK
     Route: 065
     Dates: start: 201911

REACTIONS (4)
  - Cardiac arrest [Fatal]
  - Pneumonia [Unknown]
  - Coronavirus infection [Unknown]
  - Cardiac disorder [Unknown]
